FAERS Safety Report 6371681-0 (Version None)
Quarter: 2009Q3

REPORT INFORMATION
  Report Type: 
  Country: None (occurrence: None)
  Receive Date: 20090923
  Receipt Date: 20080314
  Transmission Date: 20100115
  Serious: No
  Sender: FDA-Public Use
  Company Number: US-ASTRAZENECA-2008UW01425

PATIENT
  Age: 505 Month
  Sex: Female
  Weight: 90.7 kg

DRUGS (26)
  1. SEROQUEL [Suspect]
     Indication: BIPOLAR DISORDER
     Route: 048
     Dates: start: 20000101
  2. SEROQUEL [Suspect]
     Indication: DEPRESSION
     Route: 048
     Dates: start: 20000101
  3. SEROQUEL [Suspect]
     Dosage: 300 MG,DISPENSED
     Route: 048
     Dates: start: 20051114
  4. SEROQUEL [Suspect]
     Dosage: 300 MG,DISPENSED
     Route: 048
     Dates: start: 20051114
  5. GEODON [Concomitant]
     Dates: start: 20060101
  6. ZYPREXA [Concomitant]
  7. AMBIEN CR [Concomitant]
     Dosage: 12.5 MG, DISPENSED
     Dates: start: 20071010
  8. TIZANIDINE HCL [Concomitant]
     Dosage: 4 MG,DISPENSED
     Dates: start: 20050912
  9. CLONAZEPAM [Concomitant]
     Dosage: 1 MG,DISPENSED
     Dates: start: 20050912
  10. TRAZODONE [Concomitant]
     Dosage: 50-100 MG,DISPENSED
     Dates: start: 20050912
  11. IMIPRAM HCL [Concomitant]
     Dosage: 50 MG,DISPENSED
     Dates: start: 20070911
  12. MIRTAZAPINE [Concomitant]
     Dosage: 45 MG,DISPENSED
     Dates: start: 20070911
  13. METOCLOPRAM [Concomitant]
     Dosage: 5-10 MG,DISPENSED
     Dates: start: 20050912
  14. NIFEDIPIN ER (XL) [Concomitant]
     Dosage: 30-60 MG,DISPENSED
     Dates: start: 20051012
  15. METOPROLOL TARTRATE [Concomitant]
     Dosage: 100 MG,DISPENSED
     Dates: start: 20071218
  16. DIOVAN [Concomitant]
     Dosage: 160 MG,DISPENSED
     Dates: start: 20071218
  17. TERAZOSIN HCL [Concomitant]
     Dosage: 2 MG,DISPENSED
     Dates: start: 20071218
  18. SIMVASTATIN [Concomitant]
     Dosage: 40 MG,DISPENSED
     Dates: start: 20071218
  19. LEXAPRO [Concomitant]
     Dosage: 10-20 MG,DISPENSED
     Dates: start: 20071218
  20. AMLODIPINE [Concomitant]
     Dosage: 10 MG,DISPENSED
     Dates: start: 20071222
  21. ONDANSETRON [Concomitant]
     Dosage: 40 MG,DISPENSED
     Dates: start: 20071230
  22. PREVACID [Concomitant]
     Dosage: 30 MG,DISPENSED
     Dates: start: 20071230
  23. KLOR-CON [Concomitant]
     Dosage: M 20 ,DISPENSED
     Dates: start: 20071230
  24. LIPITOR [Concomitant]
     Dosage: 10 MG,DISPENSED
     Dates: start: 20051012
  25. COREG [Concomitant]
     Dosage: 6.25 MG,DISPENSED
     Dates: start: 20051012
  26. NEXIUM [Concomitant]
     Dosage: 40 MG,DISPENSED
     Dates: start: 20051012

REACTIONS (6)
  - BLOOD CHOLESTEROL INCREASED [None]
  - DIABETES MELLITUS [None]
  - EMOTIONAL DISORDER [None]
  - HYPERTENSION [None]
  - NAUSEA [None]
  - VOMITING [None]
